FAERS Safety Report 24181327 (Version 1)
Quarter: 2024Q3

REPORT INFORMATION
  Report Type: Report from Study
  Country: FR (occurrence: FR)
  Receive Date: 20240807
  Receipt Date: 20240807
  Transmission Date: 20241017
  Serious: Yes (Other)
  Sender: ELI LILLY AND CO
  Company Number: FR-ELI_LILLY_AND_COMPANY-FR202407018221

PATIENT
  Age: 53 Year
  Sex: Female

DRUGS (2)
  1. OLUMIANT [Suspect]
     Active Substance: BARICITINIB
     Indication: Vitiligo
     Dosage: 4 MG, DAILY
     Route: 048
  2. OLUMIANT [Suspect]
     Active Substance: BARICITINIB
     Dosage: 2 MG, UNKNOWN
     Route: 048

REACTIONS (2)
  - Renal failure [Unknown]
  - Off label use [Unknown]
